FAERS Safety Report 19433156 (Version 1)
Quarter: 2021Q2

REPORT INFORMATION
  Report Type: Spontaneous
  Country: CA (occurrence: CA)
  Receive Date: 20210618
  Receipt Date: 20210618
  Transmission Date: 20210717
  Serious: Yes (Hospitalization)
  Sender: FDA-Public Use
  Company Number: CA-LUPIN PHARMACEUTICALS INC.-2021-09596

PATIENT
  Age: 35 Year
  Sex: Female

DRUGS (14)
  1. MORPHINE [Suspect]
     Active Substance: MORPHINE
     Dosage: UNK, BID,600MG MORNING, 640MG NIGHT FOR 2 D THEN INCREASED TO 680MG ( 34 WEEKS AND 4DAYS GESTATIONS)
     Route: 048
     Dates: start: 20190510
  2. METHADONE [Suspect]
     Active Substance: METHADONE HYDROCHLORIDE
     Dosage: 170 MILLIGRAM, BID,CESAREAN DELIVERY AT 39WEEKS AND 1DAY GESTATION
     Route: 065
     Dates: start: 20190611, end: 20190614
  3. OXYCODONE [Suspect]
     Active Substance: OXYCODONE
     Indication: DRUG USE DISORDER
     Dosage: UNK,LONG ACTING
     Route: 065
     Dates: start: 2010
  4. MORPHINE [Suspect]
     Active Substance: MORPHINE
     Dosage: 150 MILLIGRAM, BID
     Route: 048
     Dates: start: 20190611
  5. METHADONE [Suspect]
     Active Substance: METHADONE HYDROCHLORIDE
     Dosage: 140 MILLIGRAM, BID,31 WEEKS AND 6 DAY GESTATION
     Route: 065
     Dates: end: 20190421
  6. METHADONE [Suspect]
     Active Substance: METHADONE HYDROCHLORIDE
     Dosage: UNK, BID,142MG MORNING AND 170MG NIGHT (34 WEEKS AND 4 DAYS GESTATIONS), BID
     Route: 065
     Dates: start: 20190510
  7. MORPHINE [Suspect]
     Active Substance: MORPHINE
     Dosage: UNK, BID,35 WEEKS AND 4 DAYS GESTATION (600MG MORNING AND 680MG NIGHT)
     Route: 048
     Dates: start: 20190517
  8. METHADONE [Suspect]
     Active Substance: METHADONE HYDROCHLORIDE
     Dosage: UNK UNK, BID, (33WEEKS AND 4 DAY GESTATION (142MG MORNING, INCREASED TO 160MG NIGHT FOR 5DAYS THEN I
     Route: 065
     Dates: start: 20190503
  9. CARFENTANIL (11C) [Suspect]
     Active Substance: CARFENTANIL
     Indication: PAIN
     Dosage: UNK,30 TABLETS; STREET?SOURCED
     Route: 045
  10. HYDROMORPHONE [Suspect]
     Active Substance: HYDROMORPHONE
     Indication: DRUG USE DISORDER
     Dosage: SHORT ACTING
     Route: 065
  11. MORPHINE [Suspect]
     Active Substance: MORPHINE
     Indication: DRUG USE DISORDER
     Dosage: 600 MILLIGRAM, BID,(31 WEEKS AND 6 DAY GESTATION, 32 WEEKS GESTATIONS, 33 WEEKS AND 4 DAY GESTATION)
     Route: 048
     Dates: start: 20190306
  12. METHADONE [Suspect]
     Active Substance: METHADONE HYDROCHLORIDE
     Indication: DRUG USE DISORDER
     Dosage: 30 MILLIGRAM, QD,25WEEK AND 2DAY OF GESTATIONUNK UNK, BID, (33WEEKS AND 4 DAY GESTATION (142MG MORNI
     Route: 065
     Dates: start: 20190306
  13. METHADONE [Suspect]
     Active Substance: METHADONE HYDROCHLORIDE
     Dosage: UNK, BID,32 WEEKS GESTATIONS (142MG MORNING AND 143MG NIGHT), BID
     Route: 065
     Dates: start: 20190422
  14. METHADONE [Suspect]
     Active Substance: METHADONE HYDROCHLORIDE
     Dosage: UNK,35 WEEKS AND 4DAYS GESTATION (* 160MG MORNING FOR 5DAYS, THEN 170MG MORNING AND 170MG NIGHT)
     Route: 065
     Dates: start: 20190517

REACTIONS (2)
  - Maternal exposure during pregnancy [Unknown]
  - Constipation [Unknown]
